FAERS Safety Report 16209071 (Version 2)
Quarter: 2019Q3

REPORT INFORMATION
  Report Type: Spontaneous
  Country: US (occurrence: US)
  Receive Date: 20190417
  Receipt Date: 20190826
  Transmission Date: 20191004
  Serious: Yes (Hospitalization)
  Sender: FDA-Public Use
  Company Number: US-BAUSCH-BL-2019-010873

PATIENT
  Age: 28 Year
  Sex: Female

DRUGS (2)
  1. SALICYLIC ACID. [Suspect]
     Active Substance: SALICYLIC ACID
     Indication: SKIN PAPILLOMA
     Dosage: FIRST APPLICATION, APPLIED OVER THE COUNTER TOPICAL SALICYLIC ACID
     Route: 061
  2. SALICYLIC ACID. [Suspect]
     Active Substance: SALICYLIC ACID
     Dosage: SECOND APPLICATION
     Route: 061

REACTIONS (1)
  - Hypersensitivity [Recovering/Resolving]
